FAERS Safety Report 14764305 (Version 1)
Quarter: 2018Q2

REPORT INFORMATION
  Report Type: Spontaneous
  Country: US (occurrence: US)
  Receive Date: 20180410
  Receipt Date: 20180410
  Transmission Date: 20180711
  Serious: No
  Sender: FDA-Public Use
  Company Number: None

PATIENT
  Age: 70 Year
  Sex: Male

DRUGS (15)
  1. STIVARGA [Concomitant]
     Active Substance: REGORAFENIB
  2. VITAMIN D3 [Concomitant]
     Active Substance: CHOLECALCIFEROL
  3. VITAMIN B12 [Concomitant]
     Active Substance: CYANOCOBALAMIN
  4. TUMS [Concomitant]
     Active Substance: CALCIUM CARBONATE
  5. LONSURF [Suspect]
     Active Substance: TIPIRACIL HYDROCHLORIDE\TRIFLURIDINE
     Indication: COLON CANCER
     Dosage: 1-5 + 8-12
     Route: 048
     Dates: start: 20180308
  6. AMLODIPINE [Concomitant]
     Active Substance: AMLODIPINE BESYLATE
  7. LATANOPROST. [Concomitant]
     Active Substance: LATANOPROST
  8. LIDOCAINE=PRILOCAINE [Concomitant]
  9. METFORMIN [Concomitant]
     Active Substance: METFORMIN HYDROCHLORIDE
  10. LONSURF [Suspect]
     Active Substance: TIPIRACIL HYDROCHLORIDE\TRIFLURIDINE
     Indication: HEPATIC CANCER
  11. PRAVASTATIN. [Concomitant]
     Active Substance: PRAVASTATIN
  12. FISH OIL [Concomitant]
     Active Substance: FISH OIL
  13. GABAPENTIN. [Concomitant]
     Active Substance: GABAPENTIN
  14. LISINOPRIL. [Concomitant]
     Active Substance: LISINOPRIL
  15. URSODIOL. [Concomitant]
     Active Substance: URSODIOL

REACTIONS (2)
  - Adverse drug reaction [None]
  - Hospitalisation [None]

NARRATIVE: CASE EVENT DATE: 20180409
